FAERS Safety Report 19137488 (Version 1)
Quarter: 2021Q2

REPORT INFORMATION
  Report Type: Report from Study
  Country: CA (occurrence: CA)
  Receive Date: 20210415
  Receipt Date: 20210415
  Transmission Date: 20210717
  Serious: Yes (Other)
  Sender: FDA-Public Use
  Company Number: CA-JNJFOC-20210413956

PATIENT
  Age: 50 Year
  Sex: Female
  Weight: 83.5 kg

DRUGS (1)
  1. REMICADE [Suspect]
     Active Substance: INFLIXIMAB
     Indication: COLITIS ULCERATIVE
     Route: 042
     Dates: start: 20200512

REACTIONS (6)
  - Back pain [Recovered/Resolved]
  - Product use issue [Unknown]
  - Oral herpes [Recovered/Resolved]
  - Diarrhoea haemorrhagic [Recovered/Resolved]
  - Off label use [Unknown]
  - Abdominal pain [Recovered/Resolved]

NARRATIVE: CASE EVENT DATE: 20210314
